FAERS Safety Report 7539948-8 (Version None)
Quarter: 2011Q2

REPORT INFORMATION
  Report Type: 
  Country: None (occurrence: None)
  Receive Date: 20110603
  Receipt Date: 20110516
  Transmission Date: 20111010
  Serious: Yes (Life-Threatening, Hospitalization)
  Sender: FDA-Public Use
  Company Number: 20110405

PATIENT
  Age: 57 Year
  Sex: Male

DRUGS (1)
  1. LIDOCAINE HYDROCHLORIDE [Suspect]
     Indication: CARDIAC DISORDER
     Dosage: INITIAL DOSE- 60 MG, IV
     Route: 042

REACTIONS (10)
  - VENTRICULAR TACHYCARDIA [None]
  - SOMNOLENCE [None]
  - ELECTROCARDIOGRAM QRS COMPLEX PROLONGED [None]
  - UNRESPONSIVE TO STIMULI [None]
  - CARDIAC ARREST [None]
  - CONFUSIONAL STATE [None]
  - PULSELESS ELECTRICAL ACTIVITY [None]
  - PULSE ABSENT [None]
  - TOXICITY TO VARIOUS AGENTS [None]
  - MENTAL STATUS CHANGES [None]
